FAERS Safety Report 6509841-8 (Version None)
Quarter: 2009Q4

REPORT INFORMATION
  Report Type: 
  Country: None (occurrence: None)
  Receive Date: 20091221
  Receipt Date: 20091221
  Transmission Date: 20100525
  Serious: No
  Sender: FDA-Public Use
  Company Number: None

PATIENT
  Sex: Female

DRUGS (1)
  1. DILANTIN [Suspect]
     Indication: EPILEPSY
     Dosage: 400 MG Q HS PO
     Route: 048
     Dates: start: 20090601

REACTIONS (3)
  - CONVULSION [None]
  - NIGHTMARE [None]
  - PRODUCT SUBSTITUTION ISSUE [None]
